FAERS Safety Report 17256928 (Version 1)
Quarter: 2020Q1

REPORT INFORMATION
  Report Type: Spontaneous
  Country: US (occurrence: US)
  Receive Date: 20200110
  Receipt Date: 20200110
  Transmission Date: 20200409
  Serious: No
  Sender: FDA-Public Use
  Company Number: US-ASTRAZENECA-2020SE02871

PATIENT
  Sex: Female
  Weight: 9.2 kg

DRUGS (3)
  1. SYNAGIS [Suspect]
     Active Substance: PALIVIZUMAB
     Indication: RESPIRATORY SYNCYTIAL VIRUS INFECTION
     Route: 030
     Dates: start: 201910
  2. ZANTAC [Concomitant]
     Active Substance: RANITIDINE HYDROCHLORIDE
  3. CUVPOSA [Concomitant]
     Active Substance: GLYCOPYRROLATE

REACTIONS (3)
  - Vomiting [Unknown]
  - Lower respiratory tract infection [Unknown]
  - Pyrexia [Unknown]
